FAERS Safety Report 8492343-X (Version None)
Quarter: 2012Q3

REPORT INFORMATION
  Report Type: 
  Country: None (occurrence: None)
  Receive Date: 20120706
  Receipt Date: 20120629
  Transmission Date: 20120928
  Serious: Yes (Other)
  Sender: FDA-Public Use
  Company Number: US-SHIRE-ALL1-2012-03218

PATIENT
  Age: 10 Year
  Sex: Male
  Weight: 32.653 kg

DRUGS (1)
  1. INTUNIV [Suspect]
     Indication: ATTENTION DEFICIT/HYPERACTIVITY DISORDER
     Dosage: 1 MG, UNKNOWN
     Route: 048
     Dates: start: 20120101

REACTIONS (3)
  - DIARRHOEA [None]
  - PYREXIA [None]
  - HALLUCINATIONS, MIXED [None]
